FAERS Safety Report 25965229 (Version 1)
Quarter: 2025Q4

REPORT INFORMATION
  Report Type: Spontaneous
  Country: US (occurrence: US)
  Receive Date: 20251027
  Receipt Date: 20251027
  Transmission Date: 20260118
  Serious: No
  Sender: SANOFI AVENTIS
  Company Number: US-SA-2025SA316825

PATIENT
  Sex: Male

DRUGS (2)
  1. ELOCTATE [Suspect]
     Active Substance: EFMOROCTOCOG ALFA
     Dosage: 1500 IU
     Route: 042
  2. ELOCTATE [Suspect]
     Active Substance: EFMOROCTOCOG ALFA
     Dosage: 1500 IU
     Route: 042

REACTIONS (4)
  - Illness [Unknown]
  - Pyrexia [Unknown]
  - Dyspnoea [Unknown]
  - Nasal congestion [Unknown]
